FAERS Safety Report 19279529 (Version 1)
Quarter: 2021Q2

REPORT INFORMATION
  Report Type: Spontaneous
  Country: DE (occurrence: DE)
  Receive Date: 20210520
  Receipt Date: 20210520
  Transmission Date: 20210717
  Serious: No
  Sender: FDA-Public Use
  Company Number: DE-HORMOSAN PHARMA GMBH-2020-03880

PATIENT
  Sex: Female
  Weight: 79 kg

DRUGS (2)
  1. MAEXENI 20 0,02 MG/0,1 MG FILMTABLETTEN [Suspect]
     Active Substance: ETHINYL ESTRADIOL\LEVONORGESTREL
     Indication: PRODUCT USED FOR UNKNOWN INDICATION
     Dosage: UNK
     Route: 065
     Dates: start: 20200627
  2. L?THYROXIN [LEVOTHYROXINE] [Concomitant]
     Active Substance: LEVOTHYROXINE SODIUM
     Indication: PRODUCT USED FOR UNKNOWN INDICATION
     Dosage: 1 DOSAGE FORM, QD
     Route: 065
     Dates: start: 202001

REACTIONS (6)
  - Crying [Unknown]
  - Pain in extremity [Unknown]
  - Acne [Unknown]
  - Depression [Unknown]
  - Discharge [Unknown]
  - Arthralgia [Unknown]

NARRATIVE: CASE EVENT DATE: 20200627
